FAERS Safety Report 25336388 (Version 1)
Quarter: 2025Q2

REPORT INFORMATION
  Report Type: Spontaneous
  Country: US (occurrence: None)
  Receive Date: 20250520
  Receipt Date: 20250520
  Transmission Date: 20250716
  Serious: No
  Sender: FDA-CTU
  Company Number: None

PATIENT
  Age: 46 Year
  Sex: Female

DRUGS (1)
  1. WEGOVY [Suspect]
     Active Substance: SEMAGLUTIDE
     Indication: Weight decreased
     Route: 058

REACTIONS (8)
  - Alopecia [None]
  - Sensitive skin [None]
  - Skin disorder [None]
  - Arthralgia [None]
  - Neck pain [None]
  - Pain [None]
  - Pain in extremity [None]
  - Depression [None]

NARRATIVE: CASE EVENT DATE: 20241125
